FAERS Safety Report 10364341 (Version 3)
Quarter: 2014Q3

REPORT INFORMATION
  Report Type: Report from Study
  Country: CA (occurrence: CA)
  Receive Date: 20140806
  Receipt Date: 20140818
  Transmission Date: 20150326
  Serious: Yes (Other)
  Sender: FDA-Public Use
  Company Number: CA-BRISTOL-MYERS SQUIBB COMPANY-20905600

PATIENT
  Age: 66 Year
  Sex: Female

DRUGS (9)
  1. CELEBREX [Concomitant]
     Active Substance: CELECOXIB
  2. ORENCIA [Suspect]
     Active Substance: ABATACEPT
     Indication: RHEUMATOID ARTHRITIS
     Dosage: 29MAY14 INFUSION WAS CANCELLED?LOT NO:3J75953-EXP:JUL2016?ONGOING
     Route: 042
     Dates: start: 20130226
  3. PREDNISONE. [Concomitant]
     Active Substance: PREDNISONE
  4. ZOPLICONE [Concomitant]
     Active Substance: ZOPICLONE
  5. ATIVAN [Concomitant]
     Active Substance: LORAZEPAM
  6. METHOTREXATE [Concomitant]
     Active Substance: METHOTREXATE
  7. FOLIC ACID. [Concomitant]
     Active Substance: FOLIC ACID
  8. CALCIUM [Concomitant]
     Active Substance: CALCIUM
  9. OLMETEC [Concomitant]
     Active Substance: OLMESARTAN MEDOXOMIL

REACTIONS (3)
  - Bladder disorder [Recovering/Resolving]
  - Uterine mass [Recovering/Resolving]
  - Uterine disorder [Unknown]

NARRATIVE: CASE EVENT DATE: 20140520
